FAERS Safety Report 7121280-8 (Version None)
Quarter: 2010Q4

REPORT INFORMATION
  Report Type: 
  Country: None (occurrence: None)
  Receive Date: 20101124
  Receipt Date: 20101115
  Transmission Date: 20110411
  Serious: Yes (Other)
  Sender: FDA-Public Use
  Company Number: US-MYLANLABS-2010S1021132

PATIENT
  Age: 51 Year
  Sex: Female

DRUGS (12)
  1. PROPRANOLOL HYDROCHLORIDE [Suspect]
     Indication: TREMOR
     Route: 048
     Dates: start: 20101103
  2. PROPRANOLOL HYDROCHLORIDE [Suspect]
     Indication: MIGRAINE
     Route: 048
     Dates: start: 20101103
  3. STIMATE /00361902/ [Concomitant]
  4. AMICAR [Concomitant]
     Indication: ANTICOAGULANT THERAPY
  5. LAMOTRIGINE [Concomitant]
  6. SEROQUEL [Concomitant]
  7. HYDROXIZINE [Concomitant]
  8. IRON [Concomitant]
  9. ROZEREM [Concomitant]
  10. CALCIUM MAGNESIUM ZINC [Concomitant]
  11. M.V.I. [Concomitant]
  12. SELENIUM [Concomitant]

REACTIONS (2)
  - EPISTAXIS [None]
  - HYPOTENSION [None]
